FAERS Safety Report 19588905 (Version 1)
Quarter: 2021Q3

REPORT INFORMATION
  Report Type: Spontaneous
  Country: DK (occurrence: DK)
  Receive Date: 20210721
  Receipt Date: 20210721
  Transmission Date: 20211014
  Serious: Yes (Death, Other)
  Sender: FDA-Public Use
  Company Number: DK-JNJFOC-20210738939

PATIENT
  Age: 70 Year
  Sex: Female
  Weight: 82 kg

DRUGS (6)
  1. TRIMOPAN [TRIMETHOPRIM] [Concomitant]
     Active Substance: TRIMETHOPRIM
     Indication: URINARY TRACT INFECTION
     Dates: start: 20200131
  2. SERENASE (HALOPERIDOL) [Suspect]
     Active Substance: HALOPERIDOL
     Indication: DELIRIUM
     Dosage: STRENGTH: 5 MG/ML
     Route: 042
     Dates: start: 20210608, end: 20210615
  3. KALEORID [Concomitant]
     Active Substance: POTASSIUM CHLORIDE
     Indication: MINERAL SUPPLEMENTATION
     Dates: start: 20191121
  4. METOPROLOL SUCCINATE. [Concomitant]
     Active Substance: METOPROLOL SUCCINATE
     Indication: HYPERTENSION
     Dates: start: 20200918
  5. DOLOL [TRAMADOL] [Concomitant]
     Indication: PAIN
     Dates: start: 20200406
  6. VAGIFEM [Concomitant]
     Active Substance: ESTRADIOL
     Indication: HORMONE THERAPY
     Dates: start: 20200203

REACTIONS (6)
  - Incorrect route of product administration [Unknown]
  - Cardiac arrest [Recovered/Resolved with Sequelae]
  - Electrocardiogram QT prolonged [Recovered/Resolved with Sequelae]
  - Off label use [Unknown]
  - Vomiting [Recovered/Resolved]
  - Cerebral ischaemia [Fatal]

NARRATIVE: CASE EVENT DATE: 20210615
